FAERS Safety Report 20068801 (Version 2)
Quarter: 2023Q2

REPORT INFORMATION
  Report Type: Spontaneous
  Country: JP (occurrence: JP)
  Receive Date: 20211115
  Receipt Date: 20230613
  Transmission Date: 20230721
  Serious: Yes (Other)
  Sender: FDA-Public Use
  Company Number: JP-PFIZER INC-202101489378

PATIENT
  Age: 47 Year
  Sex: Male

DRUGS (1)
  1. VORICONAZOLE [Suspect]
     Active Substance: VORICONAZOLE
     Indication: Pneumonia fungal
     Dosage: 100 MG, DAILY
     Route: 048

REACTIONS (2)
  - Neuroendocrine carcinoma of the skin [Unknown]
  - Squamous cell carcinoma of skin [Unknown]
